FAERS Safety Report 6059303-X (Version None)
Quarter: 2009Q1

REPORT INFORMATION
  Report Type: 
  Country: None (occurrence: None)
  Receive Date: 20090130
  Receipt Date: 20090122
  Transmission Date: 20090719
  Serious: Yes (Life-Threatening, Other)
  Sender: FDA-Public Use
  Company Number: DE-VALEANT-2009VX000109

PATIENT
  Age: 88 Year
  Sex: Female

DRUGS (1)
  1. DALMADORM ^ICN^ [Suspect]
     Route: 048

REACTIONS (4)
  - ACIDOSIS [None]
  - HYPOTHERMIA [None]
  - SOMNOLENCE [None]
  - SUICIDE ATTEMPT [None]
